FAERS Safety Report 20855864 (Version 1)
Quarter: 2022Q2

REPORT INFORMATION
  Report Type: Spontaneous
  Country: US (occurrence: None)
  Receive Date: 20220520
  Receipt Date: 20220520
  Transmission Date: 20220721
  Serious: Yes (Hospitalization)
  Sender: FDA-Public Use
  Company Number: None

PATIENT
  Sex: Male
  Weight: 69.4 kg

DRUGS (16)
  1. MYCOPHENOLIC ACID [Suspect]
     Active Substance: MYCOPHENOLIC ACID
     Indication: Lung neoplasm malignant
     Dosage: FREQUENCY : DAILY;?
     Route: 048
  2. ALLOPURINOL [Concomitant]
     Active Substance: ALLOPURINOL
  3. ELIQUIS [Concomitant]
     Active Substance: APIXABAN
  4. FINASTERIDE [Concomitant]
     Active Substance: FINASTERIDE
  5. FUROSEMIDE [Concomitant]
     Active Substance: FUROSEMIDE
  6. LOSARTAN [Concomitant]
     Active Substance: LOSARTAN
  7. MELATONIN [Concomitant]
     Active Substance: MELATONIN
  8. PREDNISONE [Concomitant]
     Active Substance: PREDNISONE
  9. PROMACTA [Concomitant]
     Active Substance: ELTROMBOPAG OLAMINE
  10. SIMVASTATIN [Concomitant]
     Active Substance: SIMVASTATIN
  11. TAMSULOSIN [Concomitant]
     Active Substance: TAMSULOSIN
  12. TRAZODONE [Concomitant]
     Active Substance: TRAZODONE HYDROCHLORIDE
  13. ZINCE [Concomitant]
  14. OMEPRAZOLE [Concomitant]
     Active Substance: OMEPRAZOLE
  15. TRAMADOL [Concomitant]
     Active Substance: TRAMADOL
  16. YOUTHFRUL BRAIN [Concomitant]

REACTIONS (1)
  - Hospitalisation [None]
